FAERS Safety Report 9875452 (Version 2)
Quarter: 2014Q1

REPORT INFORMATION
  Report Type: Other
  Country: US (occurrence: US)
  Receive Date: 20140206
  Receipt Date: 20140206
  Transmission Date: 20141002
  Serious: No
  Sender: FDA-Public Use
  Company Number: US-ACORDA-ACO_36901_2013

PATIENT
  Sex: Male
  Weight: 68.27 kg

DRUGS (9)
  1. AMPYRA [Suspect]
     Indication: GAIT DISTURBANCE
     Dosage: 10 MG, BID
     Route: 048
     Dates: start: 201303
  2. AMPYRA [Suspect]
     Indication: MOBILITY DECREASED
  3. AMPYRA [Suspect]
     Indication: MULTIPLE SCLEROSIS
  4. BETASERON [Concomitant]
     Indication: MULTIPLE SCLEROSIS
     Dosage: 0.25 MG, QOD
     Route: 058
  5. BACLOFEN [Concomitant]
     Indication: MUSCLE SPASTICITY
     Dosage: 40 MG, TID
     Route: 048
  6. OXYBUTYNIN [Concomitant]
     Indication: NEUROGENIC BLADDER
     Dosage: 5 MG, BID
     Route: 048
  7. NEURONTIN [Concomitant]
     Indication: NEURALGIA
     Dosage: 1200 MG, QHS
     Route: 048
  8. HYDROCODONE [Concomitant]
     Indication: BACK PAIN
     Dosage: 5/325 MG, TID PRN
     Route: 048
  9. MELOXICAM [Concomitant]
     Indication: BONE PAIN
     Dosage: 7.5 MG, QD
     Route: 048

REACTIONS (2)
  - Influenza like illness [Recovered/Resolved]
  - Injection site reaction [Recovered/Resolved]
